FAERS Safety Report 17199278 (Version 3)
Quarter: 2020Q2

REPORT INFORMATION
  Report Type: Report from Study
  Country: None (occurrence: US)
  Receive Date: 20191225
  Receipt Date: 20200603
  Transmission Date: 20200713
  Serious: Yes (Other)
  Sender: FDA-Public Use
  Company Number: US-ABBVIE-19K-163-3200602-00

PATIENT
  Age: 52 Year
  Sex: Female

DRUGS (2)
  1. HUMIRA [Suspect]
     Active Substance: ADALIMUMAB
     Indication: ANKYLOSING SPONDYLITIS
     Route: 058
     Dates: end: 201912
  2. HUMIRA [Suspect]
     Active Substance: ADALIMUMAB
     Indication: UVEITIS

REACTIONS (16)
  - Joint range of motion decreased [Unknown]
  - Back pain [Not Recovered/Not Resolved]
  - Bursitis [Unknown]
  - Uveitis [Not Recovered/Not Resolved]
  - Impaired work ability [Unknown]
  - Biopsy site unspecified abnormal [Unknown]
  - Mass [Not Recovered/Not Resolved]
  - Erythema [Not Recovered/Not Resolved]
  - Feeling abnormal [Recovered/Resolved]
  - Optic nerve injury [Not Recovered/Not Resolved]
  - Therapeutic product effect incomplete [Unknown]
  - Loss of personal independence in daily activities [Unknown]
  - Fall [Recovered/Resolved]
  - Breast mass [Not Recovered/Not Resolved]
  - Musculoskeletal disorder [Recovered/Resolved]
  - Oral herpes [Not Recovered/Not Resolved]

NARRATIVE: CASE EVENT DATE: 201912
